FAERS Safety Report 21839421 (Version 3)
Quarter: 2023Q2

REPORT INFORMATION
  Report Type: Report from Study
  Country: US (occurrence: US)
  Receive Date: 20230109
  Receipt Date: 20230508
  Transmission Date: 20230721
  Serious: No
  Sender: FDA-Public Use
  Company Number: US-ABBVIE-4261723

PATIENT
  Sex: Male

DRUGS (22)
  1. VENCLEXTA [Suspect]
     Active Substance: VENETOCLAX
     Indication: Plasma cell myeloma
     Dosage: DOSE: 400 MG, 1 WEEK OFF FOR 21 DAYS ON FOLLOWED BY 7 DAYS OFF;?FORM STRENGTH: 100 MILLIGRAM
     Route: 048
     Dates: start: 20221014
  2. VENCLEXTA [Suspect]
     Active Substance: VENETOCLAX
     Indication: Plasma cell myeloma
     Route: 048
  3. VENCLEXTA [Suspect]
     Active Substance: VENETOCLAX
     Indication: Plasma cell myeloma
     Dosage: TAKE 4 TABLET(S) BY MOUTH DAILY 3 WEEK(S) ON, 1 WEEK(S) OFF
     Route: 048
  4. BELBUCA [Concomitant]
     Active Substance: BUPRENORPHINE HYDROCHLORIDE
     Indication: Product used for unknown indication
     Dosage: 150MCG FILM, PATIENT TAKING DIFFERENTLY;?FORM STRENGTH: 150 MICROGRAM
     Route: 048
     Dates: start: 20191218
  5. COLACE [Concomitant]
     Active Substance: DOCUSATE SODIUM
     Indication: Product used for unknown indication
     Dosage: FORM STRENGTH: 250 MILLIGRAM
     Route: 048
     Dates: start: 20171101
  6. VIAGRA [Concomitant]
     Active Substance: SILDENAFIL CITRATE
     Indication: Erectile dysfunction
     Dosage: 100 MG,  TAKE 1 TABLET BY MOUTH ONCE NEEDED
     Route: 048
     Dates: start: 20191218
  7. VIAGRA [Concomitant]
     Active Substance: SILDENAFIL CITRATE
     Indication: Erectile dysfunction
     Dosage: 100 MG,  TAKE 1 TABLET BY MOUTH ONCE NEEDED
     Route: 048
     Dates: start: 20191218
  8. VIAGRA [Concomitant]
     Active Substance: SILDENAFIL CITRATE
     Indication: Erectile dysfunction
     Dosage: TAKE 1 TABLET BY MOUTH ONCE NEEDED;?FORM STRENGTH: 100 MILLIGRAM
     Route: 048
     Dates: start: 20191218
  9. ZOFRAN [Concomitant]
     Active Substance: ONDANSETRON HYDROCHLORIDE
     Indication: Nausea
     Dosage: FORM STRENGTH: 8 MILLIGRAM
     Route: 048
     Dates: start: 20200515
  10. VITAMIN B12 [Concomitant]
     Active Substance: CYANOCOBALAMIN
     Indication: Product used for unknown indication
     Dosage: DOSE: 1 ML.  FORM OF ADMIN: 1000MCG/ML INJECTION
     Route: 058
     Dates: start: 20210318
  11. DESYREL [Concomitant]
     Active Substance: TRAZODONE HYDROCHLORIDE
     Indication: Product used for unknown indication
     Dosage: FORM STRENGTH: 100 MILLIGRAM
     Route: 048
     Dates: start: 20221108
  12. PREVACID [Concomitant]
     Active Substance: LANSOPRAZOLE
     Indication: Product used for unknown indication
     Dosage: FORM STRENGTH: 30 MILLIGRAM
     Route: 048
     Dates: start: 20210510
  13. FLOVENT HFA [Concomitant]
     Active Substance: FLUTICASONE PROPIONATE
     Indication: Product used for unknown indication
     Dosage: FORM OF ADMIN: 110MCG/ACTUATION INHALER, DOSE: 2 PUFFS INTO LUNGS TWICE A DAY
     Route: 055
     Dates: start: 20190830
  14. VENTOLIN HFA [Concomitant]
     Active Substance: ALBUTEROL SULFATE
     Indication: Wheezing
     Dosage: 90MCG/ACTUATION METERED DOSE INHALER, INHALE 1 PUFF INTO TO THE LUNGS EVERY 6 HOURS
     Route: 055
     Dates: start: 20210111
  15. LEVAQUIN [Concomitant]
     Active Substance: LEVOFLOXACIN
     Indication: Product used for unknown indication
     Dosage: FORM STRENGTH: 750 MILLIGRAM
     Route: 048
     Dates: start: 20221206, end: 20221213
  16. PEPCID [Concomitant]
     Active Substance: FAMOTIDINE
     Indication: Product used for unknown indication
     Dosage: FORM STRENGTH: 20 MILLIGRAM
     Route: 048
     Dates: start: 20210415
  17. ZOVIRAX [Concomitant]
     Active Substance: ACYCLOVIR
     Indication: Product used for unknown indication
     Dosage: FORM STRENGTH: 400 MILLIGRAM
     Route: 048
     Dates: start: 20210415
  18. PRINIVIL [Concomitant]
     Active Substance: LISINOPRIL
     Indication: Product used for unknown indication
     Dosage: FORM STRENGTH: 5 MILLIGRAM
     Route: 048
     Dates: start: 20210414
  19. VITAMIN D3 [Concomitant]
     Active Substance: CHOLECALCIFEROL
     Indication: Product used for unknown indication
     Dosage: FORM STRENGTH: 1000 UNIT
     Route: 048
     Dates: start: 20200515
  20. XANAX [Concomitant]
     Active Substance: ALPRAZOLAM
     Indication: Product used for unknown indication
     Dosage: FORM STRENGTH: 2 MILLIGRAM
     Route: 048
     Dates: start: 20190820
  21. COMPAZINE [Concomitant]
     Active Substance: PROCHLORPERAZINE MALEATE
     Indication: Nausea
     Dosage: FORM STRENGTH: 10 MILLIGRAM
     Route: 048
     Dates: start: 20200515
  22. ZESTRIL [Concomitant]
     Active Substance: LISINOPRIL
     Indication: Product used for unknown indication
     Dosage: DOSAGE: 5 MG/G FORM STRENGTH: 5 MILLIGRAM
     Route: 048
     Dates: start: 20210514

REACTIONS (4)
  - Off label use [Unknown]
  - Pneumonia [Unknown]
  - Fatigue [Unknown]
  - Adverse drug reaction [Unknown]

NARRATIVE: CASE EVENT DATE: 20220101
